FAERS Safety Report 8277963-X (Version None)
Quarter: 2012Q2

REPORT INFORMATION
  Report Type: 
  Country: None (occurrence: None)
  Receive Date: 20120412
  Receipt Date: 20120404
  Transmission Date: 20120825
  Serious: Yes (Other)
  Sender: FDA-Public Use
  Company Number: GB-JNJFOC-20111109106

PATIENT
  Age: 67 Year
  Sex: Female
  Weight: 70 kg

DRUGS (7)
  1. DURAGESIC-100 [Suspect]
     Indication: PAIN
     Route: 062
  2. DURAGESIC-100 [Suspect]
     Route: 062
     Dates: start: 20110801
  3. PANTOPRAZOLE [Concomitant]
     Indication: DYSPEPSIA
     Route: 065
  4. FEXOFENADINE [Concomitant]
     Indication: ANTIALLERGIC THERAPY
     Route: 065
  5. ACETAMINOPHEN [Concomitant]
     Indication: PRODUCT USED FOR UNKNOWN INDICATION
     Route: 065
  6. CITALOPRAM HYDROBROMIDE [Concomitant]
     Indication: DEPRESSION
     Route: 065
  7. DURAGESIC-100 [Suspect]
     Route: 062

REACTIONS (1)
  - RESTLESS LEGS SYNDROME [None]
